FAERS Safety Report 15977612 (Version 1)
Quarter: 2019Q1

REPORT INFORMATION
  Report Type: Spontaneous
  Country: US (occurrence: US)
  Receive Date: 20190218
  Receipt Date: 20190218
  Transmission Date: 20190418
  Serious: Yes (Hospitalization, Other)
  Sender: FDA-Public Use
  Company Number: PHEH2019US006167

PATIENT
  Age: 43 Year
  Sex: Male
  Weight: 95.1 kg

DRUGS (12)
  1. DELTASONE [Concomitant]
     Active Substance: PREDNISONE
     Indication: PRODUCT USED FOR UNKNOWN INDICATION
     Dosage: 1 DF, UNK (13 HRS PRIOR TO EXAM THEN TAKE 1 TABLET , 7 HRS PRIOR TO EXAM THEN TAKE 1 TABLET 1 HR PR)
     Route: 048
  2. DEXAMETHASONE. [Concomitant]
     Active Substance: DEXAMETHASONE
     Indication: NAUSEA
     Dosage: 4 DF, PRN
     Route: 065
  3. VITAMIN D [Concomitant]
     Active Substance: CHOLECALCIFEROL
     Indication: PRODUCT USED FOR UNKNOWN INDICATION
     Dosage: 50000 U, UNK
     Route: 048
  4. ZYPREXA [Concomitant]
     Active Substance: OLANZAPINE
     Indication: PRODUCT USED FOR UNKNOWN INDICATION
     Dosage: 1 DF, UNK (AT BEDTIME)
     Route: 048
  5. GEMCITABINE [Suspect]
     Active Substance: GEMCITABINE\GEMCITABINE HYDROCHLORIDE
     Indication: PANCREATIC CARCINOMA METASTATIC
     Dosage: 38 MG/KG, UNK (DAY 1 TO 6 AND 8)
     Route: 042
     Dates: start: 20181018
  6. PERCOCET [Concomitant]
     Active Substance: ACETAMINOPHEN\OXYCODONE HYDROCHLORIDE
     Indication: PAIN
     Dosage: 2 DF, Q4H (1-2TABLETS)
     Route: 048
  7. GEMCITABINE [Suspect]
     Active Substance: GEMCITABINE\GEMCITABINE HYDROCHLORIDE
     Dosage: 38 MG/ML, UNK
     Route: 042
     Dates: start: 20181018, end: 20181025
  8. DEXAMETHASONE. [Concomitant]
     Active Substance: DEXAMETHASONE
     Indication: VOMITING
  9. ADVIL [Concomitant]
     Active Substance: IBUPROFEN
     Indication: PRODUCT USED FOR UNKNOWN INDICATION
     Dosage: 1 DF, TID
     Route: 048
  10. MYLICON INFANTS GAS RELIEF ORIGINAL [Concomitant]
     Active Substance: DIMETHICONE
     Indication: FLATULENCE
     Dosage: UNK UNK, PRN
     Route: 048
  11. KISQALI [Suspect]
     Active Substance: RIBOCICLIB
     Indication: PANCREATIC CARCINOMA METASTATIC
     Dosage: 800 MG, UNK (DAY 8-14)
     Route: 048
     Dates: start: 20181025, end: 20181031
  12. BENADRYL [Concomitant]
     Active Substance: DIPHENHYDRAMINE HYDROCHLORIDE
     Indication: PRODUCT USED FOR UNKNOWN INDICATION
     Dosage: 1 DF, QH
     Route: 065

REACTIONS (9)
  - Obstruction gastric [Unknown]
  - Food intolerance [Unknown]
  - Pain [Unknown]
  - Abdominal pain lower [Unknown]
  - Product use in unapproved indication [Unknown]
  - Vomiting [Unknown]
  - Decreased appetite [Unknown]
  - Metastases to gastrointestinal tract [Unknown]
  - Tumour haemorrhage [Unknown]

NARRATIVE: CASE EVENT DATE: 20181109
